FAERS Safety Report 18549330 (Version 2)
Quarter: 2021Q2

REPORT INFORMATION
  Report Type: Spontaneous
  Country: CA (occurrence: CA)
  Receive Date: 20201126
  Receipt Date: 20210417
  Transmission Date: 20210717
  Serious: Yes (Death)
  Sender: FDA-Public Use
  Company Number: CA-JNJFOC-20201139420

PATIENT
  Age: 15 Day
  Sex: Male

DRUGS (2)
  1. CHILDRENS MOTRIN [Suspect]
     Active Substance: IBUPROFEN
     Indication: PATENT DUCTUS ARTERIOSUS
     Dosage: USING THE REGIMEN OF 20 MG/KG ORAL ONE TIME THEN 10 MG/KG ORAL DAILY TWO TIMES. THE LAST DOSE WAS GI
     Route: 048
     Dates: start: 2019, end: 2019
  2. FENTANYL. [Concomitant]
     Active Substance: FENTANYL
     Indication: PAIN
     Route: 065

REACTIONS (2)
  - Haemorrhage [Fatal]
  - Intestinal perforation [Fatal]

NARRATIVE: CASE EVENT DATE: 2019
